FAERS Safety Report 13378226 (Version 3)
Quarter: 2017Q2

REPORT INFORMATION
  Report Type: Spontaneous
  Country: AU (occurrence: AU)
  Receive Date: 20170328
  Receipt Date: 20170406
  Transmission Date: 20170830
  Serious: Yes (Hospitalization, Other)
  Sender: FDA-Public Use
  Company Number: AU-ABBVIE-17P-008-1916434-00

PATIENT
  Age: 70 Year
  Sex: Male

DRUGS (9)
  1. DUODOPA [Suspect]
     Active Substance: CARBIDOPA\LEVODOPA
     Indication: PRODUCT USED FOR UNKNOWN INDICATION
     Dosage: 150/37.5MG
     Route: 050
  2. APO-MIRTAZAPINE [Suspect]
     Active Substance: MIRTAZAPINE
     Indication: PRODUCT USED FOR UNKNOWN INDICATION
     Dosage: QHS
     Route: 065
  3. COMTAN [Suspect]
     Active Substance: ENTACAPONE
     Indication: PRODUCT USED FOR UNKNOWN INDICATION
     Route: 065
  4. GENRX METOPROLOL [Suspect]
     Active Substance: METOPROLOL TARTRATE
     Indication: PRODUCT USED FOR UNKNOWN INDICATION
     Route: 065
  5. APO VENLAFAXINE [Suspect]
     Active Substance: VENLAFAXINE HYDROCHLORIDE
     Indication: PRODUCT USED FOR UNKNOWN INDICATION
     Route: 065
  6. ROTIGOTINE [Suspect]
     Active Substance: ROTIGOTINE
     Indication: PRODUCT USED FOR UNKNOWN INDICATION
     Route: 065
  7. APO-OLANZAPINE [Suspect]
     Active Substance: OLANZAPINE
     Indication: PRODUCT USED FOR UNKNOWN INDICATION
     Route: 065
  8. CLOZARIL [Suspect]
     Active Substance: CLOZAPINE
     Indication: PRODUCT USED FOR UNKNOWN INDICATION
     Route: 065
  9. DIGOXIN. [Suspect]
     Active Substance: DIGOXIN
     Indication: PRODUCT USED FOR UNKNOWN INDICATION
     Route: 065

REACTIONS (21)
  - Ventricular hypokinesia [Unknown]
  - Delusion [Unknown]
  - Hallucination, visual [Unknown]
  - Blood chloride increased [Recovered/Resolved]
  - Blood lactate dehydrogenase [Recovered/Resolved]
  - Ejection fraction decreased [Unknown]
  - Dilatation atrial [Unknown]
  - Neutrophil count increased [Unknown]
  - Tricuspid valve sclerosis [Unknown]
  - Coronary artery disease [Unknown]
  - Blood chloride increased [Unknown]
  - Mitral valve sclerosis [Unknown]
  - Protein total decreased [Unknown]
  - Blood chloride increased [Recovered/Resolved]
  - Lymphocyte count decreased [Unknown]
  - Atrial fibrillation [Unknown]
  - Blood lactate dehydrogenase [Unknown]
  - Neutrophil count increased [Recovered/Resolved]
  - Myocardial infarction [Unknown]
  - Psychiatric decompensation [Unknown]
  - Drug effect incomplete [Unknown]

NARRATIVE: CASE EVENT DATE: 20160930
